FAERS Safety Report 9009404 (Version 1)
Quarter: 2013Q1

REPORT INFORMATION
  Report Type: Spontaneous
  Country: US (occurrence: US)
  Receive Date: 20130111
  Receipt Date: 20130111
  Transmission Date: 20140127
  Serious: Yes (Hospitalization, Other)
  Sender: FDA-Public Use
  Company Number: US-009507513-1301USA002453

PATIENT
  Sex: Female

DRUGS (12)
  1. SINGULAIR [Suspect]
  2. POTASSIUM CHLORIDE [Suspect]
     Dosage: 20 MG, QD
     Route: 048
  3. FLUTICASONE PROPIONATE [Suspect]
     Indication: ATRIAL FIBRILLATION
     Dosage: UNK, PRN
  4. ALBUTEROL SULFATE [Suspect]
  5. IPRATROPIUM BROMIDE [Suspect]
  6. PREDNISONE [Suspect]
     Dosage: 5 MG, UNK
  7. FUROSEMIDE [Suspect]
     Dosage: 40 MG, UNK
  8. SALMETEROL XINAFOATE [Suspect]
  9. PROMETHAZINE [Suspect]
     Dosage: 25 MG, PRN
  10. PREVACID [Suspect]
     Dosage: 30 MG, UNK
  11. WARFARIN SODIUM [Suspect]
     Dosage: 5 MG, UNK
  12. DICYCLOMINE HYDROCHLORIDE [Suspect]
     Dosage: 10 MG, AC

REACTIONS (5)
  - Haemorrhage [Unknown]
  - Haemoglobin decreased [Unknown]
  - Dyspnoea [Unknown]
  - Drug interaction [Unknown]
  - Asthenia [Unknown]
